FAERS Safety Report 6582940-0 (Version None)
Quarter: 2010Q1

REPORT INFORMATION
  Report Type: 
  Country: None (occurrence: None)
  Receive Date: 20100204
  Receipt Date: 20100121
  Transmission Date: 20100710
  Serious: Yes (Other)
  Sender: FDA-Public Use
  Company Number: 1000008876

PATIENT
  Age: 46 Year
  Sex: Female

DRUGS (3)
  1. ESCITALOPRAM [Suspect]
     Dosage: ORAL
     Route: 048
     Dates: start: 20081101, end: 20090201
  2. CHAMPIX [Suspect]
     Indication: SMOKING CESSATION THERAPY
     Dosage: ORAL
     Route: 048
     Dates: start: 20080101, end: 20080101
  3. CHAMPIX [Suspect]
     Indication: SMOKING CESSATION THERAPY
     Dosage: ORAL
     Route: 048
     Dates: start: 20080601, end: 20080801

REACTIONS (12)
  - AGGRESSION [None]
  - ANXIETY [None]
  - CONDITION AGGRAVATED [None]
  - CRYING [None]
  - DRUG WITHDRAWAL SYNDROME [None]
  - HOSTILITY [None]
  - MOOD SWINGS [None]
  - MUSCLE TIGHTNESS [None]
  - PANIC REACTION [None]
  - SUICIDAL IDEATION [None]
  - SURGERY [None]
  - VOMITING [None]
